FAERS Safety Report 20893914 (Version 1)
Quarter: 2022Q2

REPORT INFORMATION
  Report Type: Spontaneous
  Country: US (occurrence: US)
  Receive Date: 20220531
  Receipt Date: 20220531
  Transmission Date: 20220721
  Serious: No
  Sender: FDA-Public Use
  Company Number: US-BRISTOL-MYERS SQUIBB COMPANY-2022-042538

PATIENT
  Age: 85 Year
  Sex: Male
  Weight: 89.81 kg

DRUGS (1)
  1. REVLIMID [Suspect]
     Active Substance: LENALIDOMIDE
     Indication: Plasma cell myeloma
     Dosage: DOSE: 5 MILLIGRAM, FREQ: DAILY FOR 3 WEEKS ON, 1 WEEK OFF
     Route: 048
     Dates: start: 202010

REACTIONS (2)
  - Vomiting [Recovering/Resolving]
  - Gastroenteritis viral [Recovering/Resolving]
